FAERS Safety Report 6335065-3 (Version None)
Quarter: 2009Q3

REPORT INFORMATION
  Report Type: 
  Country: None (occurrence: None)
  Receive Date: 20090831
  Receipt Date: 20090824
  Transmission Date: 20100115
  Serious: Yes (Hospitalization)
  Sender: FDA-Public Use
  Company Number: A0804805A

PATIENT
  Sex: Female
  Weight: 63 kg

DRUGS (3)
  1. SERETIDE [Suspect]
     Indication: CHRONIC OBSTRUCTIVE PULMONARY DISEASE
     Dates: start: 20070101
  2. METICORTEN [Concomitant]
  3. OTHER MEDICATIONS [Concomitant]

REACTIONS (1)
  - PNEUMONIA [None]
